FAERS Safety Report 5025686-2 (Version None)
Quarter: 2006Q2

REPORT INFORMATION
  Report Type: 
  Country: None (occurrence: None)
  Receive Date: 20060614
  Receipt Date: 20040818
  Transmission Date: 20061013
  Serious: Yes (Death, Other)
  Sender: FDA-Public Use
  Company Number: GBWYE985518AUG04

PATIENT
  Sex: Male

DRUGS (6)
  1. ENBREL [Suspect]
     Indication: RHEUMATOID ARTHRITIS
     Route: 058
     Dates: start: 20031001, end: 20040721
  2. PREDNISOLONE [Concomitant]
     Dates: start: 19980201
  3. GLICLAZIDE [Concomitant]
     Dates: start: 20021201
  4. METFORMIN [Concomitant]
     Dates: start: 20021201
  5. ALENDRONIC ACID [Concomitant]
     Dates: start: 19980201
  6. CALCICHEW-D3 [Concomitant]
     Dates: start: 19980201

REACTIONS (3)
  - DISCOMFORT [None]
  - PAIN [None]
  - PANCREATIC CARCINOMA [None]
